FAERS Safety Report 15849386 (Version 1)
Quarter: 2019Q1

REPORT INFORMATION
  Report Type: Spontaneous
  Country: HK (occurrence: HK)
  Receive Date: 20190121
  Receipt Date: 20190121
  Transmission Date: 20190417
  Serious: Yes (Death, Other)
  Sender: FDA-Public Use
  Company Number: HK-SAKK-2019SA011551AA

PATIENT
  Age: 60 Year
  Sex: Male

DRUGS (4)
  1. CLEXANE [Suspect]
     Active Substance: ENOXAPARIN SODIUM
     Indication: DYSPNOEA
  2. CLEXANE [Suspect]
     Active Substance: ENOXAPARIN SODIUM
     Indication: PNEUMOTHORAX
  3. CLEXANE [Suspect]
     Active Substance: ENOXAPARIN SODIUM
     Indication: DEEP VEIN THROMBOSIS
     Dosage: UNK UNK, UNK
     Route: 065
     Dates: start: 20190103
  4. CLEXANE [Suspect]
     Active Substance: ENOXAPARIN SODIUM
     Indication: ABSCESS

REACTIONS (5)
  - Hepatic enzyme increased [Unknown]
  - Hepatic haemorrhage [Unknown]
  - Shock haemorrhagic [Unknown]
  - Cardiac failure [Fatal]
  - Peritoneal haemorrhage [Unknown]

NARRATIVE: CASE EVENT DATE: 20190109
